FAERS Safety Report 5513114-X (Version None)
Quarter: 2007Q4

REPORT INFORMATION
  Report Type: 
  Country: None (occurrence: None)
  Receive Date: 20071108
  Receipt Date: 20071025
  Transmission Date: 20080405
  Serious: Yes (Death)
  Sender: FDA-Public Use
  Company Number: 163359ISR

PATIENT
  Age: 66 Year
  Sex: Male

DRUGS (1)
  1. LISINOPRIL [Suspect]
     Indication: MYOCARDIAL ISCHAEMIA
     Dosage: (5 MG)
     Route: 048

REACTIONS (2)
  - BRONCHOPNEUMONIA [None]
  - PEMPHIGUS [None]
